FAERS Safety Report 7155226-3 (Version None)
Quarter: 2010Q4

REPORT INFORMATION
  Report Type: 
  Country: None (occurrence: None)
  Receive Date: 20101214
  Receipt Date: 20091111
  Transmission Date: 20110411
  Serious: No
  Sender: FDA-Public Use
  Company Number: US-AMGEN-KDL374091

PATIENT

DRUGS (6)
  1. ENBREL [Suspect]
     Indication: PRODUCT USED FOR UNKNOWN INDICATION
     Dosage: 50 MG, 2 TIMES/WK
     Route: 058
  2. IBANDRONATE SODIUM [Concomitant]
     Dosage: 150 MG, UNK
  3. DIPHENHYDRAMINE HYDROCHLORIDE [Concomitant]
     Dosage: 25 MG, UNK
  4. SIMVASTATIN [Concomitant]
     Dosage: 10 MG, UNK
  5. LEVOTHYROXINE SODIUM [Concomitant]
     Dosage: 112 A?G, UNK
  6. CALCIUM WITH VITAMIN D [Concomitant]
     Dosage: UNK UNK, UNK

REACTIONS (3)
  - HYPOAESTHESIA [None]
  - PARAESTHESIA [None]
  - UPPER-AIRWAY COUGH SYNDROME [None]
